FAERS Safety Report 9854665 (Version 1)
Quarter: 2014Q1

REPORT INFORMATION
  Report Type: Spontaneous
  Country: US (occurrence: US)
  Receive Date: 20140130
  Receipt Date: 20140130
  Transmission Date: 20141002
  Serious: No
  Sender: FDA-Public Use
  Company Number: US-BIOGENIDEC-2014BI008191

PATIENT
  Age: 36 Year
  Sex: Female

DRUGS (9)
  1. TECFIDERA [Suspect]
     Indication: MULTIPLE SCLEROSIS
     Route: 048
     Dates: start: 20131115
  2. SYMBICORT [Concomitant]
  3. VIT D [Concomitant]
  4. NASONEX [Concomitant]
  5. DYMISTA [Concomitant]
  6. ACETYLCYSTEINE [Concomitant]
  7. LEVOCETIRIZINE [Concomitant]
  8. FLONASE [Concomitant]
  9. QNASL [Concomitant]

REACTIONS (1)
  - Weight decreased [Not Recovered/Not Resolved]
